FAERS Safety Report 22203463 (Version 1)
Quarter: 2023Q2

REPORT INFORMATION
  Report Type: Spontaneous
  Country: US (occurrence: None)
  Receive Date: 20230412
  Receipt Date: 20230412
  Transmission Date: 20230722
  Serious: Yes (Disabling)
  Sender: FDA-Public Use
  Company Number: None

PATIENT
  Age: 72 Year
  Sex: Female
  Weight: 65.25 kg

DRUGS (7)
  1. PROLIA [Suspect]
     Active Substance: DENOSUMAB
     Indication: Osteoporosis
     Route: 030
     Dates: start: 20230106, end: 20230107
  2. Breo [Concomitant]
  3. pro air [Concomitant]
  4. pepcid [Concomitant]
  5. ALBUTEROL SULFATE [Concomitant]
     Active Substance: ALBUTEROL SULFATE
  6. TYLENOL [Concomitant]
  7. ADVIL [Concomitant]
     Active Substance: IBUPROFEN

REACTIONS (8)
  - Urticaria [None]
  - Dyspepsia [None]
  - Asthenia [None]
  - Pain [None]
  - Pain in extremity [None]
  - Headache [None]
  - Fatigue [None]
  - Myalgia [None]

NARRATIVE: CASE EVENT DATE: 20230106
